FAERS Safety Report 8922939 (Version 3)
Quarter: 2012Q4

REPORT INFORMATION
  Report Type: 
  Country: FR (occurrence: FR)
  Receive Date: 20121123
  Receipt Date: 20121210
  Transmission Date: 20130627
  Serious: Yes (Hospitalization)
  Sender: FDA-Public Use
  Company Number: FR-009507513-1211FRA007437

PATIENT
  Age: 46 Year
  Sex: Male

DRUGS (14)
  1. VICTRELIS [Suspect]
     Indication: HEPATITIS C
     Dosage: 3200 mg, qd
     Route: 048
     Dates: start: 20120821, end: 20120821
  2. VICTRELIS [Suspect]
     Dosage: 800 mg, tid
     Dates: start: 20120829
  3. PROGRAF [Suspect]
     Indication: TRANSPLANT
     Dosage: 0.5 mg, qod
     Route: 048
     Dates: start: 2010, end: 20120822
  4. PROGRAF [Suspect]
     Dosage: 0.5 mg, qod
     Dates: start: 2010
  5. PROGRAF [Suspect]
     Dosage: 0.5 mg, qod
     Route: 048
     Dates: start: 20120829
  6. KARDEGIC [Concomitant]
     Indication: PRODUCT USED FOR UNKNOWN INDICATION
     Dosage: 75 mg, UNK
     Route: 048
  7. CARDENSIEL [Concomitant]
     Indication: PRODUCT USED FOR UNKNOWN INDICATION
     Dosage: 1.25 mg, UNK
  8. COVERSYL (PERINDOPRIL ARGININE) [Concomitant]
     Indication: PRODUCT USED FOR UNKNOWN INDICATION
     Dosage: 1.5 mg, qd
     Route: 048
  9. INEXIUM [Concomitant]
     Indication: PRODUCT USED FOR UNKNOWN INDICATION
     Dosage: 40 mg, qd
     Route: 048
  10. PEGASYS [Concomitant]
     Indication: HEPATITIS C
     Dosage: 0.142 Microgram, qw
     Route: 058
  11. REBETOL [Concomitant]
     Indication: HEPATITIS C
     Dosage: 600 mg, qd
     Route: 048
  12. INSULIN [Concomitant]
     Indication: TYPE 1 DIABETES MELLITUS
     Dosage: UNK
     Route: 058
  13. IVHEBEX [Concomitant]
     Indication: HEPATITIS B
     Dosage: UNK
  14. BARACLUDE [Concomitant]
     Indication: HEPATITIS B
     Dosage: UNK

REACTIONS (3)
  - Renal impairment [Recovered/Resolved]
  - Accidental overdose [Recovered/Resolved]
  - Drug interaction [Recovered/Resolved]
